FAERS Safety Report 7863115-1 (Version None)
Quarter: 2011Q4

REPORT INFORMATION
  Report Type: 
  Country: None (occurrence: None)
  Receive Date: 20111027
  Receipt Date: 20101111
  Transmission Date: 20120403
  Serious: No
  Sender: FDA-Public Use
  Company Number: US-AMGEN-TCS423080

PATIENT
  Age: 62 Year
  Sex: Male
  Weight: 84.36 kg

DRUGS (7)
  1. LIPITOR [Concomitant]
     Dosage: 80 MG, UNK
     Route: 048
  2. FOLIC ACID [Concomitant]
     Dosage: 1 MG, UNK
  3. METHOTREXATE [Suspect]
     Dosage: 20 MG, QWK
     Dates: end: 20100101
  4. HUMIRA [Concomitant]
     Indication: RHEUMATOID ARTHRITIS
     Dosage: 40 MG, Q2WK
     Route: 058
     Dates: start: 20100128, end: 20100317
  5. ENBREL [Suspect]
     Indication: RHEUMATOID ARTHRITIS
     Dosage: 50 MG, Q2WK
     Route: 058
     Dates: start: 20091112, end: 20100128
  6. PLAVIX [Concomitant]
     Dosage: 75 MG, UNK
     Route: 048
  7. PREDNISONE [Concomitant]
     Dosage: UNK UNK, QD
     Dates: end: 20100101

REACTIONS (9)
  - INJECTION SITE PRURITUS [None]
  - RASH PRURITIC [None]
  - FATIGUE [None]
  - INJECTION SITE RASH [None]
  - LOCAL SWELLING [None]
  - INJECTION SITE SWELLING [None]
  - ERYTHEMA [None]
  - DRUG HYPERSENSITIVITY [None]
  - INJECTION SITE ERYTHEMA [None]
